FAERS Safety Report 20556694 (Version 1)
Quarter: 2022Q1

REPORT INFORMATION
  Report Type: Spontaneous
  Country: US (occurrence: US)
  Receive Date: 20220307
  Receipt Date: 20220307
  Transmission Date: 20220423
  Serious: No
  Sender: FDA-Public Use
  Company Number: US-BoehringerIngelheim-2022-BI-157618

PATIENT
  Age: 57 Year
  Sex: Male

DRUGS (2)
  1. OFEV [Suspect]
     Active Substance: NINTEDANIB
     Indication: Fibrosis
     Dates: start: 20220222
  2. OFEV [Suspect]
     Active Substance: NINTEDANIB
     Indication: Interstitial lung disease

REACTIONS (6)
  - Chromaturia [Not Recovered/Not Resolved]
  - Pyrexia [Recovered/Resolved]
  - Dehydration [Unknown]
  - Headache [Unknown]
  - Tongue dry [Unknown]
  - Surgery [Unknown]

NARRATIVE: CASE EVENT DATE: 20220201
